FAERS Safety Report 4711610-6 (Version None)
Quarter: 2005Q3

REPORT INFORMATION
  Report Type: 
  Country: None (occurrence: None)
  Receive Date: 20050708
  Receipt Date: 20050708
  Transmission Date: 20060218
  Serious: Yes (Other)
  Sender: FDA-Public Use
  Company Number: None

PATIENT
  Age: 30 Year
  Sex: Female
  Weight: 73.4827 kg

DRUGS (2)
  1. EFFEXOR XR [Suspect]
     Indication: DEPRESSION
     Dosage: 37.5    DAILY   ORAL
     Route: 048
     Dates: start: 20040610, end: 20050705
  2. EFFEXOR XR [Suspect]
     Indication: WEIGHT DECREASED
     Dosage: 37.5    DAILY   ORAL
     Route: 048
     Dates: start: 20040610, end: 20050705

REACTIONS (7)
  - DIZZINESS [None]
  - FEELING ABNORMAL [None]
  - NAUSEA [None]
  - PARAESTHESIA [None]
  - SUICIDAL IDEATION [None]
  - TREMOR [None]
  - VOMITING [None]
